FAERS Safety Report 21541599 (Version 1)
Quarter: 2022Q4

REPORT INFORMATION
  Report Type: Spontaneous
  Country: FR (occurrence: FR)
  Receive Date: 20221102
  Receipt Date: 20221102
  Transmission Date: 20230112
  Serious: Yes (Hospitalization)
  Sender: FDA-Public Use
  Company Number: FR-ROCHE-3207178

PATIENT
  Age: 30 Year
  Sex: Male

DRUGS (6)
  1. VALIUM [Suspect]
     Active Substance: DIAZEPAM
     Indication: Drug abuse
     Route: 065
  2. RIVOTRIL [Suspect]
     Active Substance: CLONAZEPAM
     Indication: Drug abuse
     Route: 065
  3. ALCOHOL [Suspect]
     Active Substance: ALCOHOL
     Indication: Drug abuse
     Dosage: DAILY CONSUMPTION OF STRONG ALCOHOL, ONE BOTTLE/DAY OR MORE (RUM, WHISKY), FOR ONE YEAR IN CONNEC...
     Route: 065
  4. LYRICA [Suspect]
     Active Substance: PREGABALIN
     Indication: Drug abuse
     Route: 065
  5. COCAINE [Concomitant]
     Active Substance: COCAINE
     Indication: Product used for unknown indication
     Dosage: OCCASIONAL USE, SNORTED
  6. TOBACCO LEAF [Concomitant]
     Active Substance: TOBACCO LEAF
     Indication: Product used for unknown indication
     Dosage: ONE PACK/DAY

REACTIONS (4)
  - Cardio-respiratory arrest [Recovered/Resolved]
  - Drug dependence [Not Recovered/Not Resolved]
  - Alcohol poisoning [Unknown]
  - Toxicity to various agents [Unknown]

NARRATIVE: CASE EVENT DATE: 20210101
